FAERS Safety Report 6493772-6 (Version None)
Quarter: 2009Q4

REPORT INFORMATION
  Report Type: 
  Country: None (occurrence: None)
  Receive Date: 20091214
  Receipt Date: 20090710
  Transmission Date: 20100525
  Serious: Yes (Other)
  Sender: FDA-Public Use
  Company Number: US-BRISTOL-MYERS SQUIBB COMPANY-14383780

PATIENT
  Age: 66 Year
  Sex: Female
  Weight: 100 kg

DRUGS (16)
  1. ABILIFY [Suspect]
     Indication: BIPOLAR DISORDER
     Dosage: STARTED 4 YRS AGO;AS OF 06-JUL-2007 THE DOSAGE WAS 15MG.
     Route: 048
     Dates: start: 20050908
  2. ZYPREXA [Suspect]
  3. METFORMIN HCL [Concomitant]
     Dosage: 1 DOSAGE FORM=1/2 TABS,NOW TAKING 1 1/2 TAB TWICE A  DAY.
  4. SEROQUEL [Concomitant]
  5. WARFARIN SODIUM [Concomitant]
     Indication: THROMBOSIS
  6. SIMVASTATIN [Concomitant]
  7. LORATADINE [Concomitant]
  8. LASIX [Concomitant]
  9. POTASSIUM [Concomitant]
  10. IMITREX [Concomitant]
  11. MULTI-VITAMIN [Concomitant]
  12. IMIPRAMINE [Concomitant]
  13. AMBIEN [Concomitant]
  14. WELLBUTRIN SR [Concomitant]
  15. TRILEPTAL [Concomitant]
  16. LICO3 [Concomitant]

REACTIONS (4)
  - DIABETES MELLITUS [None]
  - DRUG INEFFECTIVE [None]
  - PARKINSONISM [None]
  - TARDIVE DYSKINESIA [None]
